FAERS Safety Report 4761330-7 (Version None)
Quarter: 2005Q3

REPORT INFORMATION
  Report Type: 
  Country: None (occurrence: None)
  Receive Date: 20050830
  Receipt Date: 20050719
  Transmission Date: 20060218
  Serious: No
  Sender: FDA-Public Use
  Company Number: FABR-10573

PATIENT
  Age: 48 Year
  Sex: Female
  Weight: 125.3742 kg

DRUGS (2)
  1. FABRAZYME [Suspect]
     Indication: FABRY'S DISEASE
     Dosage: 125 MG Q2WKS IV
     Route: 042
  2. FABRAZYME [Suspect]
     Indication: FABRY'S DISEASE
     Dosage: 132 MG Q2WKS IV
     Route: 042
     Dates: start: 20040210

REACTIONS (4)
  - ALOPECIA [None]
  - CATHETERISATION VENOUS [None]
  - MUSCLE TWITCHING [None]
  - RENAL FAILURE CHRONIC [None]
